FAERS Safety Report 24620617 (Version 1)
Quarter: 2024Q4

REPORT INFORMATION
  Report Type: Spontaneous
  Country: GB (occurrence: GB)
  Receive Date: 20241114
  Receipt Date: 20241114
  Transmission Date: 20250115
  Serious: Yes (Life-Threatening, Hospitalization, Other)
  Sender: SANOFI AVENTIS
  Company Number: None

PATIENT
  Age: 29 Year
  Sex: Male
  Weight: 88 kg

DRUGS (3)
  1. ALEMTUZUMAB [Suspect]
     Active Substance: ALEMTUZUMAB
     Indication: Multiple sclerosis
     Dosage: UNK
     Route: 065
     Dates: start: 20231110
  2. AVATROMBOPAG [Concomitant]
     Active Substance: AVATROMBOPAG
     Indication: Thrombosis with thrombocytopenia syndrome
     Dosage: UNK
     Dates: start: 20240911
  3. APIXABAN [Concomitant]
     Active Substance: APIXABAN
     Indication: Pulmonary embolism
     Dosage: UNK
     Dates: start: 20241031

REACTIONS (2)
  - Aplastic anaemia [Not Recovered/Not Resolved]
  - Pancytopenia [Not Recovered/Not Resolved]

NARRATIVE: CASE EVENT DATE: 20241102
